FAERS Safety Report 4327946-7 (Version None)
Quarter: 2004Q1

REPORT INFORMATION
  Report Type: 
  Country: None (occurrence: None)
  Receive Date: 20040325
  Receipt Date: 20040311
  Transmission Date: 20041129
  Serious: Yes (Hospitalization)
  Sender: FDA-Public Use
  Company Number: 001-0981-M0006987

PATIENT
  Age: 67 Year
  Sex: Male
  Weight: 83.2351 kg

DRUGS (12)
  1. ATORVASTATIN (ATORVASTATIN) [Suspect]
     Indication: CORONARY ARTERY DISEASE
     Dosage: SEE IMAGE
     Route: 048
     Dates: start: 19990806, end: 19990930
  2. ATORVASTATIN (ATORVASTATIN) [Suspect]
     Indication: CORONARY ARTERY DISEASE
     Dosage: SEE IMAGE
     Route: 048
     Dates: start: 19991001
  3. ACETYLSALICYLIC ACID SRT [Concomitant]
  4. POTASSIUM CHLORIDE [Concomitant]
  5. HYDROCHLOROTHIAZIDE [Concomitant]
  6. ISOSORBIDE MONONITRATE [Concomitant]
  7. IBUPROFEN [Concomitant]
  8. TOLTERODINE L-TARTRATE (TOLTERODINE L-TARTRATE) [Concomitant]
  9. GINKGO BILOBA (GINKGO BILOBA) [Concomitant]
  10. VERAPAMIL [Concomitant]
  11. FLUOXYMESTERONE (FLUOXYMESTERONE) [Concomitant]
  12. CELECOXIB (CELECOXIB) [Concomitant]

REACTIONS (12)
  - ALANINE AMINOTRANSFERASE INCREASED [None]
  - ASPARTATE AMINOTRANSFERASE INCREASED [None]
  - BACTERIAL INFECTION [None]
  - BILE DUCT STONE [None]
  - BILIARY SEPSIS [None]
  - BLOOD BILIRUBIN INCREASED [None]
  - CHOLANGITIS [None]
  - CHOLECYSTITIS [None]
  - CHOLELITHIASIS [None]
  - ILEUS [None]
  - PANCREATITIS [None]
  - POST PROCEDURAL COMPLICATION [None]
